FAERS Safety Report 8307971-1 (Version None)
Quarter: 2012Q2

REPORT INFORMATION
  Report Type: 
  Country: None (occurrence: None)
  Receive Date: 20120424
  Receipt Date: 20120417
  Transmission Date: 20120825
  Serious: Yes (Other)
  Sender: FDA-Public Use
  Company Number: US-GLAXOSMITHKLINE-A0973943A

PATIENT
  Age: 58 Year
  Sex: Female

DRUGS (24)
  1. CALCIUM WITH VITAMIN D [Concomitant]
  2. ZITHROMAX [Concomitant]
     Indication: SINUSITIS
  3. VENTOLIN [Suspect]
     Indication: ASTHMA
     Route: 055
     Dates: start: 20120416
  4. SUDAFED 12 HOUR [Concomitant]
  5. FLEXERIL [Concomitant]
  6. TRAMADOL HCL [Concomitant]
  7. MUCINEX [Concomitant]
  8. GLUCOSAMINE CHONDROITIN [Concomitant]
  9. ASCORBIC ACID [Concomitant]
  10. ADVAIR DISKUS 100/50 [Suspect]
     Indication: ASTHMA
     Dosage: 1PUFF VARIABLE DOSE
     Route: 055
     Dates: start: 20070101
  11. OMEPRAZOLE [Concomitant]
  12. STOOL SOFTENER [Concomitant]
  13. MULTI-VITAMIN [Concomitant]
  14. AMBIEN [Concomitant]
  15. IBUPROFEN [Concomitant]
  16. UNKNOWN MEDICATION [Concomitant]
  17. DIURETIC [Concomitant]
  18. VITAMIN D [Concomitant]
  19. TYLENOL ARTHRITIS [Concomitant]
  20. MELATONIN [Concomitant]
  21. SYNTHROID [Concomitant]
  22. ASPIRIN [Concomitant]
  23. FOLIC ACID [Concomitant]
  24. ALOE VERA [Concomitant]

REACTIONS (10)
  - RESPIRATORY DISTRESS [None]
  - PRODUCT QUALITY ISSUE [None]
  - CONVULSION [None]
  - DRUG INEFFECTIVE [None]
  - GRUNTING [None]
  - DYSPNOEA [None]
  - HYPOAESTHESIA [None]
  - PANIC ATTACK [None]
  - PARAESTHESIA [None]
  - MOVEMENT DISORDER [None]
